FAERS Safety Report 12503408 (Version 1)
Quarter: 2016Q2

REPORT INFORMATION
  Report Type: Spontaneous
  Country: US (occurrence: US)
  Receive Date: 20160628
  Receipt Date: 20160628
  Transmission Date: 20160815
  Serious: Yes (Life-Threatening, Hospitalization)
  Sender: FDA-Public Use
  Company Number: US-FRESENIUS KABI-FK201603893

PATIENT
  Age: 44 Year
  Sex: Male

DRUGS (1)
  1. ONDANSETRON (MANUFACTURER UNKNOWN) [Suspect]
     Active Substance: ONDANSETRON
     Indication: PROPHYLAXIS OF NAUSEA AND VOMITING
     Route: 065

REACTIONS (3)
  - Torsade de pointes [Recovered/Resolved]
  - Electrocardiogram abnormal [Recovered/Resolved]
  - Cardiac arrest [Recovered/Resolved]
